FAERS Safety Report 4429869-1 (Version None)
Quarter: 2004Q3

REPORT INFORMATION
  Report Type: 
  Country: None (occurrence: None)
  Receive Date: 20040805
  Receipt Date: 20040701
  Transmission Date: 20050211
  Serious: Yes (Other)
  Sender: FDA-Public Use
  Company Number: B0340136A

PATIENT
  Age: 41 Year
  Sex: Male

DRUGS (3)
  1. EPIVIR [Suspect]
  2. STAVUDINE (STAVUDINE) [Suspect]
  3. LOPINAVIR + RITONAVIR (LOPINAVIR + RITONAVIR) [Suspect]

REACTIONS (5)
  - CUTANEOUS SARCOIDOSIS [None]
  - HYPERGAMMAGLOBULINAEMIA [None]
  - RED BLOOD CELL SEDIMENTATION RATE INCREASED [None]
  - SKIN NODULE [None]
  - UVEITIS [None]
